FAERS Safety Report 12166999 (Version 1)
Quarter: 2016Q1

REPORT INFORMATION
  Report Type: Spontaneous
  Country: GB (occurrence: GB)
  Receive Date: 20160310
  Receipt Date: 20160310
  Transmission Date: 20160526
  Serious: Yes (Other)
  Sender: FDA-Public Use
  Company Number: GB-ACCORD-038548

PATIENT
  Age: 65 Year
  Sex: Female
  Weight: 76 kg

DRUGS (24)
  1. PARACETAMOL [Concomitant]
     Active Substance: ACETAMINOPHEN
     Dosage: TAKE 1 OR 2 4 TIMES/DAY
     Dates: start: 20151119
  2. CLOPIDOGREL [Concomitant]
     Active Substance: CLOPIDOGREL BISULFATE
     Dates: start: 20150511
  3. FEXOFENADINE/FEXOFENADINE HYDROCHLORIDE [Concomitant]
     Dates: start: 20140729, end: 20160128
  4. PLANTAGO OVATA [Concomitant]
     Active Substance: PLANTAGO OVATA LEAF
     Dosage: ORANGE
     Dates: start: 20150423
  5. METOCLOPRAMIDE. [Concomitant]
     Active Substance: METOCLOPRAMIDE
     Dates: start: 20111130, end: 20151130
  6. PREDNISOLONE. [Concomitant]
     Active Substance: PREDNISOLONE
     Dosage: FOR 5 DAYS
     Dates: start: 20151012
  7. TIOTROPIUM/TIOTROPIUM BROMIDE [Concomitant]
     Dates: start: 20120301
  8. SYMBICORT [Concomitant]
     Active Substance: BUDESONIDE\FORMOTEROL FUMARATE DIHYDRATE
     Dates: start: 20140729
  9. RAMIPRIL. [Suspect]
     Active Substance: RAMIPRIL
     Indication: PRODUCT USED FOR UNKNOWN INDICATION
     Dates: start: 20160113
  10. ACETYLSALICYLIC ACID [Concomitant]
     Active Substance: ASPIRIN
     Dates: start: 20160113
  11. BISOPROLOL [Concomitant]
     Active Substance: BISOPROLOL
     Dates: start: 20160113
  12. CYCLIZINE [Concomitant]
     Active Substance: CYCLIZINE
     Dosage: AS REQUIRED
     Dates: start: 20160128, end: 20160207
  13. DILTIAZEM [Concomitant]
     Active Substance: DILTIAZEM
     Dates: start: 20061020
  14. GLYCERYL TRINITRATE [Concomitant]
     Active Substance: NITROGLYCERIN
     Dates: start: 20061020
  15. MUCOGEL [Concomitant]
     Active Substance: ALUMINUM HYDROXIDE\MAGNESIUM HYDROXIDE
     Dates: start: 20111130
  16. PIROXICAM. [Concomitant]
     Active Substance: PIROXICAM
     Dates: start: 20111125
  17. ATORVASTATIN [Concomitant]
     Active Substance: ATORVASTATIN
     Dosage: AT NIGHT
     Dates: start: 20160113
  18. NASONEX [Concomitant]
     Active Substance: MOMETASONE FUROATE
     Dosage: EACH NOSTRIL
     Dates: start: 20140306
  19. SALBUTAMOL [Concomitant]
     Active Substance: ALBUTEROL
     Dosage: 1-2 PUFFS FOUR TIMES PER DAY AS NECESSARY
     Dates: start: 20111125
  20. CO-AMOXICLAV [Concomitant]
     Active Substance: AMOXICILLIN\CLAVULANIC ACID
     Dates: start: 20150331
  21. DOSULEPIN HYDROCHLORIDE [Concomitant]
     Active Substance: DOTHIEPIN HYDROCHLORIDE
     Dosage: 2-3 AT NIGHT
     Dates: start: 20111125
  22. ISOSORBIDE. [Concomitant]
     Active Substance: ISOSORBIDE
     Dosage: IN THE MORNING
     Dates: start: 20130705
  23. PANTOPRAZOLE [Concomitant]
     Active Substance: PANTOPRAZOLE SODIUM
     Dates: start: 20120430
  24. SIMVASTATIN. [Concomitant]
     Active Substance: SIMVASTATIN
     Dates: start: 20061020, end: 20160113

REACTIONS (4)
  - Back pain [Unknown]
  - Abdominal pain [Unknown]
  - Cough [Recovering/Resolving]
  - Dry mouth [Unknown]

NARRATIVE: CASE EVENT DATE: 20160222
